FAERS Safety Report 4738971-6 (Version None)
Quarter: 2005Q3

REPORT INFORMATION
  Report Type: 
  Country: None (occurrence: None)
  Receive Date: 20050801
  Receipt Date: 20050525
  Transmission Date: 20060218
  Serious: Yes (Life-Threatening, Hospitalization)
  Sender: FDA-Public Use
  Company Number: 214803

PATIENT
  Age: 77 Year
  Sex: Male
  Weight: 66.7 kg

DRUGS (5)
  1. RITUXAN [Suspect]
     Indication: CHRONIC LYMPHOCYTIC LEUKAEMIA
     Dosage: 50 MG, Q1H, INTRAVENOUS
     Route: 042
     Dates: start: 20050223, end: 20050223
  2. RITUXAN [Suspect]
     Dosage: 500 MG, INTRAVENOUS
     Route: 042
  3. RITUXAN [Suspect]
     Dosage: 100 MG, Q1H, INTRAVENOUS
     Route: 042
  4. ACETAMINOPHEN [Concomitant]
  5. BENADRYL [Concomitant]

REACTIONS (3)
  - CHILLS [None]
  - DYSPNOEA [None]
  - HYPERTENSION [None]
